FAERS Safety Report 18677330 (Version 1)
Quarter: 2020Q4

REPORT INFORMATION
  Report Type: Spontaneous
  Country: NL (occurrence: NL)
  Receive Date: 20201229
  Receipt Date: 20201229
  Transmission Date: 20210114
  Serious: Yes (Death, Life-Threatening)
  Sender: FDA-Public Use
  Company Number: NL-MYLANLABS-2020M1104362

PATIENT
  Sex: Female

DRUGS (2)
  1. TAMOXIFEN [Suspect]
     Active Substance: TAMOXIFEN
     Indication: BREAST CANCER
     Dosage: ONBEKEND
     Dates: start: 2020
  2. OXAZEPAM. [Concomitant]
     Active Substance: OXAZEPAM
     Dosage: 30 TOT 50 MG PER DAG DE LAATSTE 5 DAGEN VOOR SUICIDE, DAARVOOR GEEN ANDERE MEDICATIE

REACTIONS (3)
  - Suicidal ideation [Unknown]
  - Completed suicide [Fatal]
  - Depressed mood [Unknown]
